FAERS Safety Report 19906614 (Version 14)
Quarter: 2022Q1

REPORT INFORMATION
  Report Type: Report from Study
  Country: IL (occurrence: None)
  Receive Date: 20211001
  Receipt Date: 20220325
  Transmission Date: 20220423
  Serious: Yes (Hospitalization)
  Sender: FDA-Public Use
  Company Number: IL-EISAI MEDICAL RESEARCH-EC-2021-100667

PATIENT
  Age: 68 Year
  Sex: Female
  Weight: 82.8 kg

DRUGS (10)
  1. LENVATINIB [Suspect]
     Active Substance: LENVATINIB
     Indication: Renal cell carcinoma
     Route: 048
     Dates: start: 20210912
  2. FAVEZELIMAB [Suspect]
     Active Substance: FAVEZELIMAB
     Indication: Renal cell carcinoma
     Dosage: (MK-4280) 800 MG AND (MK-3475) 200 MG
     Route: 042
     Dates: start: 20210912, end: 20210912
  3. NEXIUM [Concomitant]
     Active Substance: ESOMEPRAZOLE MAGNESIUM
     Dates: start: 20110101
  4. CITALOPRAM [Concomitant]
     Active Substance: CITALOPRAM HYDROBROMIDE
     Dates: start: 20120101
  5. VITAMIN D NOS [Concomitant]
     Active Substance: VITAMIN D NOS
     Dates: start: 20160101
  6. METFORMIN [Concomitant]
     Active Substance: METFORMIN HYDROCHLORIDE
     Dates: start: 20160101
  7. HYDROCHLOROTHIAZIDE\LOSARTAN POTASSIUM [Concomitant]
     Active Substance: HYDROCHLOROTHIAZIDE\LOSARTAN POTASSIUM
     Dates: start: 20160101
  8. LOSARTAN [Concomitant]
     Active Substance: LOSARTAN
     Dates: start: 20160101
  9. LIPITOR [Concomitant]
     Active Substance: ATORVASTATIN CALCIUM
     Dates: start: 20160101
  10. PEMBROLIZUMAB [Suspect]
     Active Substance: PEMBROLIZUMAB

REACTIONS (1)
  - Posterior reversible encephalopathy syndrome [Not Recovered/Not Resolved]

NARRATIVE: CASE EVENT DATE: 20210915
